FAERS Safety Report 9860553 (Version 2)
Quarter: 2014Q1

REPORT INFORMATION
  Report Type: Spontaneous
  Country: US (occurrence: US)
  Receive Date: 20140202
  Receipt Date: 20140202
  Transmission Date: 20141002
  Serious: Yes (Disabling)
  Sender: FDA-Public Use
  Company Number: PHEH2014US000613

PATIENT
  Age: 55 Year
  Sex: Female

DRUGS (3)
  1. EXFORGE [Suspect]
     Indication: HYPERTENSION
     Dosage: 1 UKN (320/10UKN), DAILY
     Dates: start: 200711, end: 200805
  2. BENAZEPRIL [Suspect]
     Dosage: UNK UKN, UNK
  3. DIOVAN [Concomitant]
     Dosage: UNK UKN, UNK

REACTIONS (3)
  - Oedema peripheral [Recovered/Resolved]
  - Pain in extremity [Unknown]
  - Cough [Unknown]
